FAERS Safety Report 14562111 (Version 2)
Quarter: 2018Q2

REPORT INFORMATION
  Report Type: Spontaneous
  Country: US (occurrence: US)
  Receive Date: 20180222
  Receipt Date: 20180406
  Transmission Date: 20180711
  Serious: No
  Sender: FDA-Public Use
  Company Number: US-BAUSCH-BL-2017-002500

PATIENT
  Age: 84 Year
  Sex: Female
  Weight: 52.66 kg

DRUGS (8)
  1. VOLTAREN [Suspect]
     Active Substance: DICLOFENAC SODIUM
     Dosage: IN THE LEFT EYE
     Route: 047
     Dates: start: 20170411
  2. AVENOVA NUTRAX EYE WASH SPRAY SOLUTION [Suspect]
     Active Substance: HYPOCHLOROUS ACID
     Indication: PREOPERATIVE CARE
     Dosage: IN THE LEFT EYE
     Route: 047
     Dates: start: 20170127, end: 20170130
  3. FOSAMAX [Concomitant]
     Active Substance: ALENDRONATE SODIUM
     Indication: OSTEOPOROSIS
  4. DILTIAZEM. [Concomitant]
     Active Substance: DILTIAZEM
     Indication: HYPERTENSION
  5. VOLTAREN [Suspect]
     Active Substance: DICLOFENAC SODIUM
     Indication: PREOPERATIVE CARE
     Dosage: IN THE LEFT EYE
     Route: 047
     Dates: start: 20170127, end: 20170130
  6. DUREZOL [Suspect]
     Active Substance: DIFLUPREDNATE
     Indication: PREOPERATIVE CARE
     Dosage: IN LEFT EYE
     Dates: start: 2017, end: 2017
  7. DUREZOL [Suspect]
     Active Substance: DIFLUPREDNATE
     Dosage: IN LEFT EYE
     Dates: start: 20170411
  8. POLYMYXIN B SULFATE AND TRIMETHOPRIM [Suspect]
     Active Substance: POLYMYXIN B SULFATE\TRIMETHOPRIM SULFATE
     Indication: PREOPERATIVE CARE
     Dosage: IN THE LEFT EYE
     Route: 047
     Dates: start: 20170127, end: 20170130

REACTIONS (4)
  - Instillation site pain [Recovered/Resolved]
  - Eye discharge [Recovered/Resolved]
  - Eye infection [Recovered/Resolved]
  - Instillation site erythema [Unknown]

NARRATIVE: CASE EVENT DATE: 201701
